FAERS Safety Report 17297120 (Version 1)
Quarter: 2020Q1

REPORT INFORMATION
  Report Type: Spontaneous
  Country: GB (occurrence: GB)
  Receive Date: 20200121
  Receipt Date: 20200121
  Transmission Date: 20200409
  Serious: Yes (Death, Other)
  Sender: FDA-Public Use
  Company Number: GB-AMGEN-GBRSP2020008161

PATIENT
  Age: 76 Year
  Sex: Female

DRUGS (9)
  1. OMEPRAZOLE. [Concomitant]
     Active Substance: OMEPRAZOLE
     Dosage: 20 MILLIGRAM, QD
  2. SEVELAMER HYDROCHLORIDE. [Concomitant]
     Active Substance: SEVELAMER HYDROCHLORIDE
     Dosage: 800 MILLIGRAM, TID
  3. INSULIN [Concomitant]
     Active Substance: INSULIN NOS
     Indication: TYPE 2 DIABETES MELLITUS
  4. CINACALCET HCL [Suspect]
     Active Substance: CINACALCET HYDROCHLORIDE
     Indication: END STAGE RENAL DISEASE
     Dosage: 30 MILLIGRAM, QD
     Route: 048
     Dates: start: 200508
  5. ALFACALCIDOL [Concomitant]
     Active Substance: ALFACALCIDOL
     Dosage: 0.5 MICROGRAM, QD
  6. ASPIRIN [ACETYLSALICYLIC ACID] [Concomitant]
     Active Substance: ASPIRIN
     Dosage: 75 MILLIGRAM, QD
  7. CINACALCET HCL [Suspect]
     Active Substance: CINACALCET HYDROCHLORIDE
     Indication: HYPERPARATHYROIDISM SECONDARY
  8. ATENOLOL. [Concomitant]
     Active Substance: ATENOLOL
     Dosage: 25 MILLIGRAM, QD
  9. CALCICHEW [Concomitant]
     Active Substance: CALCIUM CARBONATE
     Dosage: 1.25 GRAM, BID

REACTIONS (1)
  - Cerebrovascular accident [Fatal]
